FAERS Safety Report 6768964-9 (Version None)
Quarter: 2010Q2

REPORT INFORMATION
  Report Type: 
  Country: None (occurrence: None)
  Receive Date: 20100615
  Receipt Date: 20100607
  Transmission Date: 20101027
  Serious: Yes (Hospitalization)
  Sender: FDA-Public Use
  Company Number: US-BIOGENIDEC-2010BI018795

PATIENT
  Age: 45 Year
  Sex: Male
  Weight: 111 kg

DRUGS (2)
  1. AVONEX [Suspect]
     Indication: MULTIPLE SCLEROSIS
     Route: 030
     Dates: start: 19990101
  2. AVONEX [Suspect]
     Route: 030

REACTIONS (9)
  - ARTHROPATHY [None]
  - BACK PAIN [None]
  - DRUG HYPERSENSITIVITY [None]
  - INJECTION SITE PAIN [None]
  - KNEE ARTHROPLASTY [None]
  - MUSCLE SPASTICITY [None]
  - NEUROLOGICAL COMPLICATION ASSOCIATED WITH DEVICE [None]
  - PYREXIA [None]
  - RASH [None]
